FAERS Safety Report 5710376-0 (Version None)
Quarter: 2008Q2

REPORT INFORMATION
  Report Type: 
  Country: None (occurrence: None)
  Receive Date: 20080418
  Receipt Date: 20080408
  Transmission Date: 20081010
  Serious: Yes (Other)
  Sender: FDA-Public Use
  Company Number: US-ABBOTT-08P-163-0446312-00

PATIENT
  Sex: Female
  Weight: 61.29 kg

DRUGS (50)
  1. VICODIN ES [Suspect]
     Indication: DRUG USE FOR UNKNOWN INDICATION
     Dosage: 5 MG HYDROCODONE BITARTRATE/750 MG ACETAMINOPHEN
     Route: 065
     Dates: start: 20040507
  2. DILAUDID [Suspect]
     Indication: DRUG USE FOR UNKNOWN INDICATION
     Route: 065
     Dates: start: 20060213, end: 20060918
  3. DILAUDID [Suspect]
     Route: 065
     Dates: start: 20060919, end: 20070131
  4. KADIAN [Suspect]
     Indication: DRUG USE FOR UNKNOWN INDICATION
     Route: 065
     Dates: start: 20060828, end: 20070130
  5. KADIAN [Suspect]
     Route: 065
     Dates: start: 20041210
  6. ACTIQ [Suspect]
     Indication: BACK PAIN
     Dosage: VARIABLE DOSING
     Route: 002
     Dates: start: 20020506
  7. ACTIQ [Suspect]
     Indication: ARTHROPATHY
     Route: 002
     Dates: start: 20020801
  8. ACTIQ [Suspect]
     Dates: start: 20021201
  9. ACTIQ [Suspect]
     Dates: start: 20040501
  10. LORCET-HD [Suspect]
     Indication: BACK PAIN
     Dosage: 10 MG HYDROCODONE/ACETAMINOPHEN DOSE
     Dates: start: 19991027
  11. NORCO [Suspect]
     Indication: BACK PAIN
     Dates: start: 20000105
  12. NORCO [Suspect]
     Route: 065
     Dates: end: 20020822
  13. OXYCODONE HYDROCHLORIDE [Suspect]
     Indication: BACK PAIN
     Route: 065
     Dates: start: 19991027
  14. OXYCODONE HYDROCHLORIDE [Suspect]
     Route: 065
     Dates: end: 20020822
  15. ROXICET [Suspect]
     Indication: DRUG USE FOR UNKNOWN INDICATION
     Route: 065
     Dates: start: 20001109
  16. STADOL [Suspect]
     Indication: BACK PAIN
     Route: 045
     Dates: start: 20011109
  17. OXYIR [Suspect]
     Indication: DRUG USE FOR UNKNOWN INDICATION
     Route: 065
     Dates: start: 20020101, end: 20020101
  18. METHADONE HCL [Suspect]
     Indication: DRUG USE FOR UNKNOWN INDICATION
     Route: 065
     Dates: start: 20020822, end: 20020903
  19. METHADONE HCL [Suspect]
     Route: 065
     Dates: start: 20020904, end: 20030609
  20. METHADONE HCL [Suspect]
     Route: 065
     Dates: start: 20030610, end: 20040907
  21. DURAGISIC [Suspect]
     Indication: BACK PAIN
     Route: 062
     Dates: start: 20040907, end: 20050224
  22. DURAGISIC [Suspect]
     Route: 062
     Dates: start: 20050225, end: 20050518
  23. DURAGISIC [Suspect]
     Route: 062
     Dates: start: 20050519, end: 20051108
  24. DURAGISIC [Suspect]
     Route: 062
     Dates: start: 20051109, end: 20060130
  25. DURAGISIC [Suspect]
     Route: 062
     Dates: start: 20060131, end: 20070202
  26. DURAGISIC [Suspect]
     Route: 062
     Dates: start: 20070203, end: 20070501
  27. ENDOCET [Suspect]
     Indication: DRUG USE FOR UNKNOWN INDICATION
     Route: 065
     Dates: start: 20060329
  28. VALIUM [Concomitant]
     Indication: DRUG USE FOR UNKNOWN INDICATION
     Dates: start: 20000104
  29. TIZANIDINE HYDROCHLORIDE [Concomitant]
     Indication: DRUG USE FOR UNKNOWN INDICATION
     Dates: start: 20000105
  30. TRAZODONE HYDROCHLORIDE [Concomitant]
     Indication: DRUG USE FOR UNKNOWN INDICATION
     Dates: start: 20000117, end: 20020822
  31. TRAZODONE HYDROCHLORIDE [Concomitant]
     Dates: start: 20020823
  32. TRAZODONE HYDROCHLORIDE [Concomitant]
     Dates: start: 20060130
  33. LORAZEPAM [Concomitant]
     Indication: DRUG USE FOR UNKNOWN INDICATION
     Dates: start: 20020411
  34. LORAZEPAM [Concomitant]
     Dates: end: 20070202
  35. SERTRALINE [Concomitant]
     Indication: DRUG USE FOR UNKNOWN INDICATION
     Dates: start: 20010307
  36. SERTRALINE [Concomitant]
     Dates: start: 20011207, end: 20020822
  37. SERTRALINE [Concomitant]
     Dates: start: 20020823
  38. GABAPENTIN [Concomitant]
     Indication: DRUG USE FOR UNKNOWN INDICATION
     Dates: start: 20011109
  39. GABAPENTIN [Concomitant]
     Dates: start: 20020104
  40. GABAPENTIN [Concomitant]
     Dates: start: 20020822
  41. GABAPENTIN [Concomitant]
     Dates: start: 20020903
  42. GABAPENTIN [Concomitant]
     Dates: start: 20030609
  43. QUETIAPINE FUMARATE [Concomitant]
     Indication: DRUG USE FOR UNKNOWN INDICATION
     Dates: start: 20030609, end: 20040907
  44. QUETIAPINE FUMARATE [Concomitant]
     Dates: start: 20040908, end: 20050420
  45. QUETIAPINE FUMARATE [Concomitant]
     Dates: start: 20050421, end: 20050518
  46. QUETIAPINE FUMARATE [Concomitant]
     Dates: start: 20050519
  47. TOPIRAMATE [Concomitant]
     Indication: DRUG USE FOR UNKNOWN INDICATION
     Dates: start: 20020822, end: 20051108
  48. TOPIRAMATE [Concomitant]
     Dates: start: 20051109, end: 20060101
  49. BUPROPION HCL [Concomitant]
     Indication: DRUG USE FOR UNKNOWN INDICATION
     Dates: start: 20050518, end: 20050525
  50. BUPROPION HCL [Concomitant]
     Dates: start: 20050526

REACTIONS (12)
  - ABNORMAL BEHAVIOUR [None]
  - DENTAL CARIES [None]
  - DEPENDENCE [None]
  - DEPRESSION [None]
  - DRUG ABUSE [None]
  - DRUG DEPENDENCE [None]
  - DRUG INEFFECTIVE [None]
  - DYSARTHRIA [None]
  - OVERDOSE [None]
  - PARTNER STRESS [None]
  - TOOTH ABSCESS [None]
  - TOOTH LOSS [None]
